FAERS Safety Report 13227052 (Version 1)
Quarter: 2017Q1

REPORT INFORMATION
  Report Type: Spontaneous
  Country: US (occurrence: US)
  Receive Date: 20170212
  Receipt Date: 20170212
  Transmission Date: 20170428
  Serious: Yes (Hospitalization, Other)
  Sender: FDA-Public Use
  Company Number: None

PATIENT
  Age: 88 Year
  Sex: Female
  Weight: 68 kg

DRUGS (11)
  1. ASPIRIN. [Concomitant]
     Active Substance: ASPIRIN
  2. SUBLINGUAL NITROGLYCERIN [Concomitant]
  3. APIXABAN [Suspect]
     Active Substance: APIXABAN
     Indication: CEREBROVASCULAR ACCIDENT PROPHYLAXIS
     Route: 048
  4. ACETAMINOPHEN. [Concomitant]
     Active Substance: ACETAMINOPHEN
  5. MEPROBAMATE. [Concomitant]
     Active Substance: MEPROBAMATE
  6. METOPROLOL. [Concomitant]
     Active Substance: METOPROLOL
  7. SIMVASTATIN. [Concomitant]
     Active Substance: SIMVASTATIN
  8. ARTIFICIAL TEARS [Concomitant]
     Active Substance: GLYCERIN\HYPROMELLOSES\POLYETHYLENE GLYCOL 400
  9. TYLENOL WITH CODEINE [Concomitant]
     Active Substance: ACETAMINOPHEN\CODEINE PHOSPHATE
  10. FAMOTIDINE. [Concomitant]
     Active Substance: FAMOTIDINE
  11. FUROSEMIDE. [Concomitant]
     Active Substance: FUROSEMIDE

REACTIONS (4)
  - Dysphagia [None]
  - Transient ischaemic attack [None]
  - Disorientation [None]
  - Speech disorder [None]

NARRATIVE: CASE EVENT DATE: 20161108
